FAERS Safety Report 25194918 (Version 1)
Quarter: 2025Q2

REPORT INFORMATION
  Report Type: Spontaneous
  Country: US (occurrence: US)
  Receive Date: 20250415
  Receipt Date: 20250415
  Transmission Date: 20250717
  Serious: No
  Sender: SANDOZ
  Company Number: US-SANDOZ-SDZ2025US022557

PATIENT
  Age: 17 Year
  Sex: Female

DRUGS (5)
  1. CYMBALTA [Suspect]
     Active Substance: DULOXETINE HYDROCHLORIDE
     Indication: Pelvic pain
     Route: 065
  2. PREGABALIN [Suspect]
     Active Substance: PREGABALIN
     Dosage: 25 MG, QD
     Route: 065
     Dates: start: 20250217
  3. PREGABALIN [Suspect]
     Active Substance: PREGABALIN
     Indication: Pelvic pain
     Dosage: 25 MG, BID
     Route: 065
     Dates: start: 202406
  4. PREGABALIN [Suspect]
     Active Substance: PREGABALIN
     Route: 065
     Dates: start: 20250314
  5. ZOFRAN [Suspect]
     Active Substance: ONDANSETRON HYDROCHLORIDE
     Indication: Nausea
     Dosage: 4 MG, QD
     Route: 048
     Dates: start: 202503

REACTIONS (3)
  - Eye pain [Not Recovered/Not Resolved]
  - Nausea [Not Recovered/Not Resolved]
  - Constipation [Unknown]

NARRATIVE: CASE EVENT DATE: 20250101
